FAERS Safety Report 16698578 (Version 1)
Quarter: 2019Q3

REPORT INFORMATION
  Report Type: Report from Study
  Country: IT (occurrence: IT)
  Receive Date: 20190813
  Receipt Date: 20190813
  Transmission Date: 20191004
  Serious: Yes (Life-Threatening)
  Sender: FDA-Public Use
  Company Number: IT-ELI_LILLY_AND_COMPANY-IT201904012685

PATIENT
  Age: 33 Year
  Sex: Male

DRUGS (3)
  1. HALCION [Suspect]
     Active Substance: TRIAZOLAM
     Indication: INSOMNIA
     Dosage: 125 UG, TOTAL
     Route: 048
     Dates: start: 20181028, end: 20181028
  2. QUETIAPINE. [Suspect]
     Active Substance: QUETIAPINE
     Indication: DEPRESSION
     Dosage: 200 MG, TOTAL
     Route: 048
     Dates: start: 20181028, end: 20181028
  3. FLUOXETINE HYDROCHLORIDE. [Suspect]
     Active Substance: FLUOXETINE HYDROCHLORIDE
     Indication: DEPRESSION
     Dosage: 20 MG, TOTAL
     Route: 048
     Dates: start: 20181028, end: 20181028

REACTIONS (6)
  - Miosis [Recovering/Resolving]
  - Drug abuse [Recovering/Resolving]
  - Wheezing [Recovering/Resolving]
  - Aggression [Recovering/Resolving]
  - Sopor [Recovering/Resolving]
  - Bronchospasm [Recovering/Resolving]

NARRATIVE: CASE EVENT DATE: 20181028
